FAERS Safety Report 7495832-X (Version None)
Quarter: 2011Q2

REPORT INFORMATION
  Report Type: 
  Country: None (occurrence: None)
  Receive Date: 20110513
  Receipt Date: 20110428
  Transmission Date: 20111010
  Serious: Yes (Congenital Anomaly)
  Sender: FDA-Public Use
  Company Number: 032294

PATIENT
  Sex: Female
  Weight: 3.1 kg

DRUGS (4)
  1. KEPPRA [Suspect]
     Indication: EPILEPSY
     Dosage: 2500 MG TRANSPLACENTAL
     Route: 064
  2. LEVOXYL [Concomitant]
  3. PRENATAL VITAMINS /01549301/ [Concomitant]
  4. FOLIC ACID [Concomitant]

REACTIONS (2)
  - MATERNAL DRUGS AFFECTING FOETUS [None]
  - VENTRICULAR SEPTAL DEFECT [None]
